FAERS Safety Report 8683126 (Version 2)
Quarter: 2012Q4

REPORT INFORMATION
  Report Type: 
  Country: US (occurrence: US)
  Receive Date: 20120726
  Receipt Date: 20120923
  Transmission Date: 20130627
  Serious: No
  Sender: FDA-Public Use
  Company Number: US-009507513-1207USA005284

PATIENT
  Age: 60 Year
  Sex: Male

DRUGS (7)
  1. PROPECIA [Suspect]
     Indication: ALOPECIA
     Dosage: UNK
     Dates: start: 20090624, end: 20120712
  2. PROPECIA [Suspect]
     Dosage: 1 mg, qd
     Route: 048
     Dates: start: 20120623, end: 20120712
  3. ALLOPURINOL [Concomitant]
  4. LIPITOR [Concomitant]
  5. VITAMINS [Concomitant]
  6. METAMUCIL [Concomitant]
  7. LISINOPRIL [Concomitant]

REACTIONS (1)
  - Erectile dysfunction [Unknown]
